FAERS Safety Report 23917856 (Version 7)
Quarter: 2024Q3

REPORT INFORMATION
  Report Type: Spontaneous
  Country: GB (occurrence: GB)
  Receive Date: 20240530
  Receipt Date: 20240809
  Transmission Date: 20241016
  Serious: Yes (Hospitalization, Other)
  Sender: AUROBINDO
  Company Number: GB-002147023-NVSC2020GB163005

PATIENT
  Age: 31 Year
  Sex: Female

DRUGS (7)
  1. LEFLUNOMIDE [Suspect]
     Active Substance: LEFLUNOMIDE
     Indication: Product used for unknown indication
     Dosage: UNK
     Route: 065
     Dates: end: 201909
  2. HYRIMOZ [Suspect]
     Active Substance: ADALIMUMAB-ADAZ
     Indication: Psoriatic arthropathy
     Dosage: 40 MILLIGRAM, 2 WEEK (40 MG, Q2W (FORTNIGHTLY))
     Route: 058
  3. HYRIMOZ [Suspect]
     Active Substance: ADALIMUMAB-ADAZ
     Dosage: 40 MILLIGRAM, 2 WEEK (40 MG, Q2W (EOW))
     Route: 058
     Dates: start: 20190510
  4. HYRIMOZ [Suspect]
     Active Substance: ADALIMUMAB-ADAZ
     Dosage: 80 MILLIGRAM, ONCE A WEEK
     Route: 058
  5. HYRIMOZ [Suspect]
     Active Substance: ADALIMUMAB-ADAZ
     Dosage: 80 MILLIGRAM, ONCE A WEEK
     Route: 058
     Dates: start: 20190510
  6. HYRIMOZ [Suspect]
     Active Substance: ADALIMUMAB-ADAZ
     Dosage: 40 MILLIGRAM, ONCE A WEEK
     Route: 058
  7. SULFASALAZINE [Suspect]
     Active Substance: SULFASALAZINE
     Indication: Product used for unknown indication
     Dosage: UNK
     Route: 065
     Dates: end: 201911

REACTIONS (17)
  - Crying [Unknown]
  - Somnolence [Unknown]
  - Fatigue [Unknown]
  - Pain [Recovering/Resolving]
  - Psoriatic arthropathy [Recovering/Resolving]
  - Hypokinesia [Unknown]
  - Depressed mood [Unknown]
  - Arthralgia [Unknown]
  - Psoriasis [Unknown]
  - Skin burning sensation [Unknown]
  - Sensitivity to weather change [Unknown]
  - Swelling [Unknown]
  - Peripheral swelling [Unknown]
  - Type 1 diabetes mellitus [Unknown]
  - Abscess oral [Not Recovered/Not Resolved]
  - Feeling abnormal [Unknown]
  - Product supply issue [Unknown]
